FAERS Safety Report 6242227-2 (Version None)
Quarter: 2009Q2

REPORT INFORMATION
  Report Type: 
  Country: None (occurrence: None)
  Receive Date: 20090622
  Receipt Date: 20090622
  Transmission Date: 20091009
  Serious: Yes (Hospitalization)
  Sender: FDA-Public Use
  Company Number: None

PATIENT
  Age: 63 Year
  Sex: Male
  Weight: 71.21 kg

DRUGS (2)
  1. DAPTOMYCIN [Suspect]
     Indication: ABDOMINAL ABSCESS
     Dosage: 400 MG EVERY DAY IV
     Route: 042
     Dates: start: 20090409, end: 20090430
  2. PIPERACILLIN SODIUM AND TAZOBACTAM SODIUM [Suspect]
     Dosage: 3.375 GM QID IV
     Route: 042
     Dates: start: 20090403, end: 20090430

REACTIONS (3)
  - GASTRIC ULCER [None]
  - INFECTION [None]
  - RHABDOMYOLYSIS [None]
